FAERS Safety Report 8915613 (Version 1)
Quarter: 2012Q4

REPORT INFORMATION
  Report Type: 
  Country: US (occurrence: US)
  Receive Date: 20121119
  Receipt Date: 20121119
  Transmission Date: 20130627
  Serious: No
  Sender: FDA-Public Use
  Company Number: US-FOUGERA-2012FO001305

PATIENT
  Age: 68 Year
  Sex: Male
  Weight: 83.46 kg

DRUGS (1)
  1. CLOBETASOL PROPIONATE [Suspect]
     Indication: RASH
     Dates: start: 201208, end: 201208

REACTIONS (2)
  - Accidental exposure to product [Recovered/Resolved]
  - Malaise [Not Recovered/Not Resolved]
